FAERS Safety Report 10529818 (Version 1)
Quarter: 2014Q4

REPORT INFORMATION
  Report Type: Spontaneous
  Country: US (occurrence: None)
  Receive Date: 20141020
  Receipt Date: 20141020
  Transmission Date: 20150528
  Serious: Yes (Hospitalization, Other)
  Sender: FDA-Public Use
  Company Number: None

PATIENT
  Sex: Female
  Weight: 88 kg

DRUGS (2)
  1. FLUPHENAZINE [Suspect]
     Active Substance: FLUPHENAZINE
  2. BENZATROPINE [Suspect]
     Active Substance: BENZTROPINE
     Dosage: NO INDICATION FOR USE.?NO STRENGTH, QUANITY, FREQUENCY LISTED. ?DRUG TAKEN BY MOUTH + INJECTION?NO START OR FINISH DATES FOR PRODUCT USE
     Route: 048

REACTIONS (2)
  - Chest pain [None]
  - Dyspnoea [None]
